FAERS Safety Report 4950808-9 (Version None)
Quarter: 2006Q1

REPORT INFORMATION
  Report Type: 
  Country: None (occurrence: None)
  Receive Date: 20060322
  Receipt Date: 20060316
  Transmission Date: 20060701
  Serious: Yes (Hospitalization)
  Sender: FDA-Public Use
  Company Number: US-SANOFI-SYNTHELABO-A03200601500

PATIENT
  Age: 50 Year
  Sex: Male

DRUGS (3)
  1. ELOXATIN [Suspect]
     Indication: DRUG USE FOR UNKNOWN INDICATION
     Route: 042
  2. FLUOROURACIL [Concomitant]
     Route: 042
  3. LEUCOVORIN CALCIUM [Concomitant]
     Route: 042

REACTIONS (1)
  - VOCAL CORD PARALYSIS [None]
